FAERS Safety Report 15733420 (Version 1)
Quarter: 2018Q4

REPORT INFORMATION
  Report Type: Spontaneous
  Country: FR (occurrence: FR)
  Receive Date: 20181218
  Receipt Date: 20181218
  Transmission Date: 20190205
  Serious: Yes (Hospitalization)
  Sender: FDA-Public Use
  Company Number: FR-TEVA-2018-FR-986830

PATIENT
  Age: 70 Year
  Sex: Male
  Weight: 88 kg

DRUGS (4)
  1. OXALIPLATIN. [Suspect]
     Active Substance: OXALIPLATIN
     Indication: ADENOCARCINOMA GASTRIC
     Route: 042
     Dates: start: 20181003, end: 20181003
  2. CALCIUM (LEVOFOLINATE  DE) [Concomitant]
     Active Substance: LEVOLEUCOVORIN CALCIUM
     Indication: ADENOCARCINOMA GASTRIC
     Route: 042
  3. DOC?TAXEL [Suspect]
     Active Substance: DOCETAXEL
     Indication: ADENOCARCINOMA GASTRIC
     Route: 042
     Dates: start: 20181003, end: 20181003
  4. FLUOROURACIL. [Suspect]
     Active Substance: FLUOROURACIL
     Indication: ADENOCARCINOMA GASTRIC
     Route: 042
     Dates: start: 20181003, end: 20181003

REACTIONS (5)
  - Hypokalaemia [Recovered/Resolved]
  - Nausea [Recovering/Resolving]
  - Hyponatraemia [Recovered/Resolved]
  - Hypomagnesaemia [Recovering/Resolving]
  - Renal tubular disorder [Recovered/Resolved]

NARRATIVE: CASE EVENT DATE: 20181017
